FAERS Safety Report 4352422-5 (Version None)
Quarter: 2004Q2

REPORT INFORMATION
  Report Type: 
  Country: None (occurrence: None)
  Receive Date: 20040428
  Receipt Date: 20040413
  Transmission Date: 20050107
  Serious: Yes (Hospitalization)
  Sender: FDA-Public Use
  Company Number: 2004209363DE

PATIENT
  Sex: Female

DRUGS (1)
  1. NICORETTE PFLASTER(NICOTINE) PATCH [Suspect]
     Dosage: ONCE, TRANSDERMAL
     Route: 062

REACTIONS (5)
  - ANAPHYLACTIC REACTION [None]
  - APPLICATION SITE ERYTHEMA [None]
  - BLISTER [None]
  - NAUSEA [None]
  - PERIPHERAL VASCULAR DISORDER [None]
